FAERS Safety Report 15629295 (Version 2)
Quarter: 2018Q4

REPORT INFORMATION
  Report Type: Spontaneous
  Country: IT (occurrence: IT)
  Receive Date: 20181117
  Receipt Date: 20181118
  Transmission Date: 20190205
  Serious: Yes (Other)
  Sender: FDA-Public Use
  Company Number: IT-TEVA-2018-IT-977250

PATIENT
  Age: 64 Year
  Sex: Female

DRUGS (7)
  1. FLUDARABINE [Suspect]
     Active Substance: FLUDARABINE PHOSPHATE
     Indication: ACUTE MYELOID LEUKAEMIA
     Dosage: 2 CYCLES
     Route: 065
     Dates: start: 20121016, end: 20130120
  2. AZACITIDINE. [Suspect]
     Active Substance: AZACITIDINE
     Indication: ACUTE MYELOID LEUKAEMIA
     Dosage: 30 CYCLES
     Route: 065
     Dates: start: 20140406, end: 20161107
  3. CYCLOSPORIN A [Suspect]
     Active Substance: CYCLOSPORINE
     Route: 065
     Dates: start: 201507
  4. ARA-C [Suspect]
     Active Substance: CYTARABINE
     Indication: ACUTE MYELOID LEUKAEMIA
     Dosage: SINGLE CYCLE OF HIGH-DOSE CYTARABINE [ARA-C].
     Route: 065
     Dates: start: 20130220
  5. LAMIVUDINE. [Suspect]
     Active Substance: LAMIVUDINE
     Indication: PROPHYLAXIS
     Route: 065
  6. CYTARABINE. [Suspect]
     Active Substance: CYTARABINE
     Indication: ACUTE MYELOID LEUKAEMIA
     Dosage: 2 CYCLES
     Route: 065
     Dates: start: 20121016, end: 20130120
  7. IDARUBICIN [Suspect]
     Active Substance: IDARUBICIN
     Indication: ACUTE MYELOID LEUKAEMIA
     Dosage: 2 CYCLES
     Route: 065
     Dates: start: 20121016, end: 20130120

REACTIONS (2)
  - Drug resistance [Unknown]
  - Hepatitis B reactivation [Recovering/Resolving]

NARRATIVE: CASE EVENT DATE: 2016
